FAERS Safety Report 13938515 (Version 2)
Quarter: 2017Q4

REPORT INFORMATION
  Report Type: Report from Study
  Country: US (occurrence: US)
  Receive Date: 20170905
  Receipt Date: 20171003
  Transmission Date: 20180320
  Serious: Yes (Death, Other)
  Sender: FDA-Public Use
  Company Number: US-009507513-1709USA000600

PATIENT
  Sex: Male

DRUGS (5)
  1. OXYCODONE [Concomitant]
     Active Substance: OXYCODONE
  2. KEYTRUDA [Suspect]
     Active Substance: PEMBROLIZUMAB
     Indication: THYROID CANCER
     Dosage: 200 MG EVERY 3 WEEKS
     Route: 042
     Dates: start: 20170124, end: 20170804
  3. GABAPENTIN. [Concomitant]
     Active Substance: GABAPENTIN
  4. LIDOCAINE. [Concomitant]
     Active Substance: LIDOCAINE
  5. OXYCONTIN [Concomitant]
     Active Substance: OXYCODONE HYDROCHLORIDE

REACTIONS (5)
  - Malignant neoplasm progression [Unknown]
  - Product use in unapproved indication [Unknown]
  - Liver disorder [Unknown]
  - Malignant neoplasm of unknown primary site [Fatal]
  - Cholelithiasis [Unknown]
